FAERS Safety Report 6127891-0 (Version None)
Quarter: 2009Q1

REPORT INFORMATION
  Report Type: 
  Country: None (occurrence: None)
  Receive Date: 20090323
  Receipt Date: 20090318
  Transmission Date: 20090719
  Serious: Yes (Hospitalization)
  Sender: FDA-Public Use
  Company Number: FR-AVENTIS-200911056FR

PATIENT
  Age: 44 Year
  Sex: Female

DRUGS (13)
  1. CLAFORAN [Suspect]
     Indication: MENINGITIS
     Route: 042
     Dates: start: 20090101, end: 20090114
  2. AMOXICILLIN [Concomitant]
     Indication: MENINGITIS
     Dates: start: 20090104, end: 20090119
  3. SKENAN [Concomitant]
     Indication: PAIN
     Dates: start: 20090104
  4. MYOLASTAN [Concomitant]
     Route: 048
     Dates: start: 20090102, end: 20090223
  5. RIFAMPICIN [Concomitant]
     Dates: start: 20090114
  6. SOLU-MEDROL [Concomitant]
     Dates: start: 20090108, end: 20090110
  7. SOLU-MEDROL [Concomitant]
     Dates: start: 20090118, end: 20090121
  8. CORTANCYL [Concomitant]
     Route: 048
     Dates: start: 20090123, end: 20090209
  9. CORTANCYL [Concomitant]
     Route: 048
     Dates: start: 20090209, end: 20090216
  10. CORTANCYL [Concomitant]
     Route: 048
     Dates: start: 20090216, end: 20090222
  11. CORTANCYL [Concomitant]
     Route: 048
     Dates: start: 20090222, end: 20090301
  12. CORTANCYL [Concomitant]
     Route: 048
     Dates: start: 20090301
  13. STILNOX                            /00914901/ [Concomitant]
     Route: 048
     Dates: start: 20081230

REACTIONS (3)
  - EOSINOPHILIA [None]
  - MONONUCLEOSIS SYNDROME [None]
  - PYREXIA [None]
